FAERS Safety Report 26161208 (Version 1)
Quarter: 2025Q4

REPORT INFORMATION
  Report Type: Spontaneous
  Country: EU (occurrence: EU)
  Receive Date: 20251216
  Receipt Date: 20251216
  Transmission Date: 20260117
  Serious: Yes (Death, Other)
  Sender: IPSEN BIOPHARMACEUTICALS, INC.
  Company Number: EU-IPSEN Group, Research and Development-2025-30723

PATIENT
  Age: 78 Year
  Sex: Male

DRUGS (4)
  1. LANREOTIDE ACETATE [Suspect]
     Active Substance: LANREOTIDE ACETATE
     Indication: Neuroendocrine tumour
  2. LUTETIUM OXODOTREOTIDE LU-177 [Concomitant]
     Active Substance: LUTETIUM OXODOTREOTIDE LU-177
  3. Ga DOTA-LM3 [Concomitant]
  4. alpha-emitting Actinium-225 [Concomitant]

REACTIONS (3)
  - Adenocarcinoma gastric [Fatal]
  - Bile duct stenosis [Unknown]
  - Malignant neoplasm progression [Unknown]
